FAERS Safety Report 23573855 (Version 2)
Quarter: 2024Q1

REPORT INFORMATION
  Report Type: Spontaneous
  Country: US (occurrence: US)
  Receive Date: 20240228
  Receipt Date: 20240315
  Transmission Date: 20240410
  Serious: Yes (Hospitalization, Other)
  Sender: FDA-Public Use
  Company Number: US-SCIEGENP-2024SCSPO00097

PATIENT
  Age: 90 Year
  Sex: Female
  Weight: 200 kg

DRUGS (8)
  1. PIRFENIDONE [Suspect]
     Active Substance: PIRFENIDONE
     Indication: Idiopathic pulmonary fibrosis
     Dosage: FOR A PERIOD OF AT LEAST 2 MONTHS
     Route: 065
     Dates: end: 20240128
  2. METOPROLOL [Concomitant]
     Active Substance: METOPROLOL
     Indication: Hypertension
     Route: 065
  3. ELMIRON [Concomitant]
     Active Substance: PENTOSAN POLYSULFATE SODIUM
     Route: 065
  4. Febustatin [Concomitant]
     Indication: Product used for unknown indication
     Route: 065
  5. OMEPRAZOLE [Concomitant]
     Active Substance: OMEPRAZOLE
     Indication: Product used for unknown indication
     Route: 065
  6. TESSALON [Concomitant]
     Active Substance: BENZONATATE
     Indication: Product used for unknown indication
     Route: 065
  7. CHOLESTYRAMINE [Concomitant]
     Active Substance: CHOLESTYRAMINE
     Indication: Product used for unknown indication
     Route: 065
  8. GASEX [Concomitant]
     Indication: Product used for unknown indication
     Route: 065

REACTIONS (4)
  - Colitis [Recovered/Resolved]
  - Flatulence [Recovered/Resolved]
  - Diarrhoea [Recovered/Resolved]
  - Asthenia [Recovered/Resolved]

NARRATIVE: CASE EVENT DATE: 20240128
